FAERS Safety Report 5740924-6 (Version None)
Quarter: 2008Q2

REPORT INFORMATION
  Report Type: 
  Country: None (occurrence: None)
  Receive Date: 20080516
  Receipt Date: 20080508
  Transmission Date: 20081010
  Serious: Yes (Other)
  Sender: FDA-Public Use
  Company Number: US-PFIZER INC-2008022430

PATIENT
  Sex: Female
  Weight: 63.5 kg

DRUGS (5)
  1. CHANTIX [Suspect]
     Indication: SMOKING CESSATION THERAPY
     Route: 048
     Dates: start: 20070413, end: 20070501
  2. XANAX [Suspect]
     Indication: ANXIETY
     Route: 048
  3. XANAX [Suspect]
     Indication: DEPRESSION
  4. SYNTHROID [Concomitant]
  5. EVISTA [Concomitant]

REACTIONS (4)
  - ANXIETY DISORDER [None]
  - BLOOD PRESSURE INCREASED [None]
  - DEPRESSION [None]
  - PALPITATIONS [None]
